FAERS Safety Report 6789129-0 (Version None)
Quarter: 2010Q2

REPORT INFORMATION
  Report Type: 
  Country: None (occurrence: None)
  Receive Date: 20100623
  Receipt Date: 20080702
  Transmission Date: 20101027
  Serious: No
  Sender: FDA-Public Use
  Company Number: US-PFIZER INC-2008054166

PATIENT
  Sex: Female
  Weight: 63.181 kg

DRUGS (2)
  1. DOSTINEX [Suspect]
     Indication: PROLACTINOMA
     Dates: end: 20071001
  2. CABERGOLINE [Suspect]
     Indication: PROLACTINOMA
     Dates: start: 20071001

REACTIONS (2)
  - BLOOD PROLACTIN DECREASED [None]
  - BLOOD PROLACTIN INCREASED [None]
